FAERS Safety Report 9581819 (Version 12)
Quarter: 2019Q4

REPORT INFORMATION
  Report Type: Report from Study
  Country: ES (occurrence: ES)
  Receive Date: 20131002
  Receipt Date: 20191125
  Transmission Date: 20200122
  Serious: Yes (Hospitalization)
  Sender: FDA-Public Use
  Company Number: ES-ROCHE-1281478

PATIENT
  Age: 64 Year
  Sex: Female

DRUGS (51)
  1. TRASTUZUMAB. [Suspect]
     Active Substance: TRASTUZUMAB
     Dosage: DATE OF LAST DOSE PRIOR TO ATRIAL FIBRILATION (THIRD EPISODE): 01/SEP/2017?TEMPORARILY INTERRUPTED D
     Route: 042
     Dates: start: 20170901, end: 20170922
  2. DOCETAXEL. [Suspect]
     Active Substance: DOCETAXEL
     Indication: HER-2 POSITIVE BREAST CANCER
     Dosage: MOST RECENT DOSE PRIOR TO FIRST EPISODE OF ATRIAL FIBRILLATION ON 13/SEP/2013
     Route: 042
     Dates: start: 20130802
  3. ENALAPRIL [Concomitant]
     Active Substance: ENALAPRIL
     Route: 065
     Dates: start: 2013
  4. ENALAPRIL [Concomitant]
     Active Substance: ENALAPRIL
     Route: 065
     Dates: start: 20141226
  5. ACETYLSALICYLIC ACID [Concomitant]
     Active Substance: ASPIRIN
     Indication: THROMBOSIS
     Route: 065
     Dates: start: 2013, end: 20131003
  6. AUGMENTIN [Concomitant]
     Active Substance: AMOXICILLIN\CLAVULANATE POTASSIUM
     Route: 065
     Dates: start: 20131017, end: 20131024
  7. ATORVASTATIN [Concomitant]
     Active Substance: ATORVASTATIN
     Route: 065
     Dates: start: 20171103
  8. APIXABAN [Concomitant]
     Active Substance: APIXABAN
     Route: 065
     Dates: start: 20170926
  9. PERTUZUMAB. [Suspect]
     Active Substance: PERTUZUMAB
     Dosage: MAINTENANCE DOSE AS PER PROTOCOL, MOST RECENT DOSE PRIOR TO ATRIAL FIBRILLATION (FIRST EPISODE) ON 1
     Route: 042
     Dates: start: 20130823
  10. PERTUZUMAB. [Suspect]
     Active Substance: PERTUZUMAB
     Dosage: MOST RECENT DOSE PRIOR TO ATRIAL FIBRILLATION (THIRD EPISODE): 01/SEP/2017?TEMPORARILY INTERRUPTED D
     Route: 042
     Dates: start: 20170901, end: 20170922
  11. HYDROCHLOROTHIAZIDE. [Concomitant]
     Active Substance: HYDROCHLOROTHIAZIDE
     Route: 065
     Dates: start: 2013, end: 20141008
  12. ACETYLSALICYLIC ACID [Concomitant]
     Active Substance: ASPIRIN
     Route: 065
     Dates: start: 20141009
  13. DEXCLORFENIRAMINA [Concomitant]
     Active Substance: DEXCHLORPHENIRAMINE
     Route: 065
     Dates: start: 20130802
  14. LEVETIRACETAM. [Concomitant]
     Active Substance: LEVETIRACETAM
     Route: 065
     Dates: start: 20141226
  15. LEVOFLOXACIN. [Concomitant]
     Active Substance: LEVOFLOXACIN
     Route: 065
     Dates: start: 20131016, end: 20131023
  16. BUSCAPINE [Concomitant]
     Active Substance: BUTYLSCOPOLAMINE
     Route: 065
     Dates: start: 20130918, end: 20130923
  17. TIRODRIL [Concomitant]
     Active Substance: METHIMAZOLE
     Route: 065
  18. TIAMAZOL [Concomitant]
     Active Substance: METHIMAZOLE
     Route: 065
     Dates: start: 20160810, end: 20160920
  19. TIAMAZOL [Concomitant]
     Active Substance: METHIMAZOLE
     Route: 065
     Dates: start: 20170112, end: 20170214
  20. TIAMAZOL [Concomitant]
     Active Substance: METHIMAZOLE
     Route: 065
     Dates: start: 20170719
  21. ATORVASTATIN [Concomitant]
     Active Substance: ATORVASTATIN
     Route: 065
     Dates: start: 20170922
  22. TRASTUZUMAB. [Suspect]
     Active Substance: TRASTUZUMAB
     Route: 042
     Dates: start: 20170925
  23. LEVETIRACETAM. [Concomitant]
     Active Substance: LEVETIRACETAM
     Dosage: UNKNOWN
     Route: 065
  24. FOSFOMYCIN [Concomitant]
     Active Substance: FOSFOMYCIN
     Route: 065
     Dates: start: 20141107, end: 20141130
  25. MONUROL [Concomitant]
     Active Substance: FOSFOMYCIN TROMETHAMINE
     Dosage: 1/3 G DAILY
     Route: 065
     Dates: start: 20141207, end: 20141209
  26. TIAMAZOL [Concomitant]
     Active Substance: METHIMAZOLE
     Route: 065
     Dates: start: 20170214, end: 20170614
  27. TIAMAZOL [Concomitant]
     Active Substance: METHIMAZOLE
     Route: 065
     Dates: start: 20170719
  28. PERTUZUMAB. [Suspect]
     Active Substance: PERTUZUMAB
     Route: 042
     Dates: start: 20170925
  29. TRASTUZUMAB. [Suspect]
     Active Substance: TRASTUZUMAB
     Dosage: MAINTENANCE DOSE  AS PER PROTOCOL?MOST RECENT DOSE PRIOR TO FIRST EPISODE OF ATRIAL FIBRILLATION ON
     Route: 042
     Dates: start: 20130823
  30. RANITIDINE. [Concomitant]
     Active Substance: RANITIDINE
     Indication: PREMEDICATION
     Route: 065
     Dates: start: 20130802
  31. DEXAMETHASONE. [Concomitant]
     Active Substance: DEXAMETHASONE
     Route: 065
     Dates: start: 20130802
  32. TIAMAZOL [Concomitant]
     Active Substance: METHIMAZOLE
     Route: 065
     Dates: start: 20160920, end: 20161108
  33. TIAMAZOL [Concomitant]
     Active Substance: METHIMAZOLE
     Route: 065
     Dates: start: 20170112, end: 20170214
  34. PERTUZUMAB. [Suspect]
     Active Substance: PERTUZUMAB
     Indication: HER-2 POSITIVE BREAST CANCER
     Dosage: LOADING DOSE AS PER PROTOCOL
     Route: 042
     Dates: start: 20130802, end: 20130802
  35. EBASTINA [Concomitant]
     Active Substance: EBASTINE
     Route: 065
     Dates: start: 20151029, end: 20151118
  36. TRASTUZUMAB. [Suspect]
     Active Substance: TRASTUZUMAB
     Indication: HER-2 POSITIVE BREAST CANCER
     Dosage: LOADING DOSE AS PER PROTOCOL
     Route: 042
     Dates: start: 20130802, end: 20130802
  37. CIPROFLOXACIN. [Concomitant]
     Active Substance: CIPROFLOXACIN
     Route: 065
     Dates: start: 20130918, end: 20130922
  38. BISOPROLOL HEMIFUMARATE [Concomitant]
     Active Substance: BISOPROLOL FUMARATE
     Route: 065
     Dates: start: 20160908
  39. TIAMAZOL [Concomitant]
     Active Substance: METHIMAZOLE
     Route: 065
     Dates: start: 20161108, end: 20161213
  40. TIAMAZOL [Concomitant]
     Active Substance: METHIMAZOLE
     Route: 065
     Dates: start: 20161213, end: 20170112
  41. TIAMAZOL [Concomitant]
     Active Substance: METHIMAZOLE
     Route: 065
     Dates: start: 20170614, end: 20170719
  42. ADIRO [Concomitant]
     Active Substance: ASPIRIN
     Route: 065
     Dates: start: 2013
  43. LEVOFLOXACIN. [Concomitant]
     Active Substance: LEVOFLOXACIN
     Route: 065
     Dates: start: 20141128, end: 20141219
  44. RINO EBASTEL [Concomitant]
     Active Substance: EBASTINE\PSEUDOEPHEDRINE HYDROCHLORIDE
     Dosage: UNKNOWN
     Route: 065
     Dates: start: 20161017, end: 20161021
  45. TRANGOREX [Concomitant]
     Active Substance: AMIODARONE HYDROCHLORIDE
     Route: 065
     Dates: start: 20150313, end: 20160908
  46. LEVETIRACETAM. [Concomitant]
     Active Substance: LEVETIRACETAM
     Dosage: 1000 MG/12 HOUR
     Route: 065
     Dates: start: 2013
  47. OMEPRAZOL [OMEPRAZOLE] [Concomitant]
     Active Substance: OMEPRAZOLE
     Route: 065
     Dates: start: 20150217, end: 20150306
  48. HIDROFEROL [Concomitant]
     Active Substance: CALCIFEDIOL
     Route: 065
     Dates: start: 20150424
  49. AMOXICILLIN. [Concomitant]
     Active Substance: AMOXICILLIN
     Dosage: UNKNOWN
     Route: 065
     Dates: start: 20161108
  50. TIAMAZOL [Concomitant]
     Active Substance: METHIMAZOLE
     Route: 065
     Dates: start: 20170614, end: 20170719
  51. TIAMAZOL [Concomitant]
     Active Substance: METHIMAZOLE
     Route: 065
     Dates: start: 20170214, end: 20170614

REACTIONS (1)
  - Atrial fibrillation [Recovered/Resolved]

NARRATIVE: CASE EVENT DATE: 20130923
